FAERS Safety Report 9761344 (Version 1)
Quarter: 2013Q1

REPORT INFORMATION
  Report Type: Spontaneous
  Country: US (occurrence: None)
  Receive Date: 20130308
  Receipt Date: 20130308
  Transmission Date: 20140127
  Serious: Yes (Hospitalization, Other)
  Sender: FDA-Public Use
  Company Number: 20130074

PATIENT
  Age: 48 Year
  Sex: Female

DRUGS (10)
  1. VENOFER (IRON SUCROSE INJECTION, USP) (2340-10) 20 MG/ML [Suspect]
     Indication: ANAEMIA
     Dosage: 500 MG IN 250 ML NS/4 ?HOURS
     Route: 041
     Dates: start: 20130129, end: 20130129
  2. LYRICA [Concomitant]
  3. NITROGLYCERIN [Concomitant]
  4. PROTONIX [Concomitant]
  5. ZOFRAN [Concomitant]
  6. DILAUDID [Concomitant]
  7. LISINOPRIL [Concomitant]
  8. INTRAVENOUS FLUIDS, UNSPECIFIED [Concomitant]
  9. LABATALOL [Concomitant]
  10. MORPHINE [Concomitant]

REACTIONS (4)
  - Off label use [None]
  - Fibrin D dimer increased [None]
  - Pain in extremity [None]
  - Oedema peripheral [None]
